FAERS Safety Report 8125143-0 (Version None)
Quarter: 2012Q1

REPORT INFORMATION
  Report Type: 
  Country: None (occurrence: None)
  Receive Date: 20120209
  Receipt Date: 20120203
  Transmission Date: 20120608
  Serious: Yes (Life-Threatening)
  Sender: FDA-Public Use
  Company Number: NL-CELGENEUS-114-C5013-11110072

PATIENT
  Sex: Male
  Weight: 82 kg

DRUGS (15)
  1. LENALIDOMIDE [Suspect]
     Indication: PROSTATE CANCER
     Dosage: 25 MILLIGRAM
     Route: 048
     Dates: start: 20110607
  2. LENALIDOMIDE [Suspect]
     Dosage: 20 MILLIGRAM
     Route: 048
     Dates: start: 20111025, end: 20111030
  3. PREDNISONE [Suspect]
     Indication: PROSTATE CANCER
     Dosage: 10 MILLIGRAM
     Route: 065
     Dates: start: 20110607
  4. CRESTOR [Concomitant]
     Dosage: 10 MILLIGRAM
     Route: 065
     Dates: start: 20060101
  5. ZOMETA [Concomitant]
     Route: 065
  6. NEULASTA [Concomitant]
     Route: 065
     Dates: start: 20110803
  7. ELIGARD [Concomitant]
     Dosage: 3 MILLIMOLE
     Route: 065
     Dates: start: 20100101
  8. DOCETAXEL [Suspect]
     Indication: PROSTATE CANCER
     Dosage: 156 MILLIGRAM
     Route: 065
     Dates: start: 20110607
  9. PREDNISONE [Suspect]
     Dosage: 10 MILLIGRAM
     Route: 065
     Dates: start: 20111025, end: 20111030
  10. ANTITHROMBOTIC AGENTS [Concomitant]
     Route: 065
  11. DEXAMETHASONE [Concomitant]
     Dosage: 16 MILLIGRAM
     Route: 065
  12. DOCETAXEL [Suspect]
     Dosage: 118 MILLIGRAM
     Route: 065
     Dates: start: 20111025, end: 20111030
  13. DICLOFENAC [Concomitant]
     Route: 065
     Dates: start: 20110901
  14. LANSOPRAZOLE [Concomitant]
     Dosage: 40 MILLIGRAM
     Route: 065
     Dates: start: 20060101
  15. ACETYLSALICYLIC ACID SRT [Concomitant]
     Dosage: 80 MILLIGRAM
     Route: 065
     Dates: start: 20110607

REACTIONS (1)
  - PSEUDOMONAL SEPSIS [None]
